FAERS Safety Report 25564006 (Version 2)
Quarter: 2025Q3

REPORT INFORMATION
  Report Type: Spontaneous
  Country: US (occurrence: US)
  Receive Date: 20250716
  Receipt Date: 20250820
  Transmission Date: 20251021
  Serious: Yes (Hospitalization, Other)
  Sender: AMNEAL
  Company Number: US-AMNEAL PHARMACEUTICALS-2025-AMRX-02628

PATIENT
  Age: 68 Year
  Sex: Male
  Weight: 88.435 kg

DRUGS (1)
  1. CREXONT [Suspect]
     Active Substance: CARBIDOPA\LEVODOPA
     Indication: Parkinson^s disease
     Dosage: 52.5/210 MG 2 CAPSULES, 3 /DAY
     Route: 048
     Dates: start: 20250613, end: 20250710

REACTIONS (4)
  - Pancreatitis [Recovered/Resolved]
  - Throat tightness [Unknown]
  - Sleep disorder [Unknown]
  - Product substitution issue [Unknown]

NARRATIVE: CASE EVENT DATE: 20250601
